FAERS Safety Report 4677447-1 (Version None)
Quarter: 2005Q2

REPORT INFORMATION
  Report Type: 
  Country: None (occurrence: None)
  Receive Date: 20050526
  Receipt Date: 20050526
  Transmission Date: 20051028
  Serious: Yes (Hospitalization)
  Sender: FDA-Public Use
  Company Number: None

PATIENT
  Age: 68 Year
  Sex: Male
  Weight: 64.8644 kg

DRUGS (6)
  1. XELODA [Suspect]
     Indication: RECTAL CANCER
     Dosage: 825 MG/M2   BID 5 DAY/WK   ORAL
     Route: 048
     Dates: start: 20050208, end: 20050317
  2. RADIATION THERAPY [Suspect]
     Indication: RECTAL CANCER
     Dosage: 220   CGY   OTHER
     Route: 050
     Dates: start: 20050208, end: 20050317
  3. FUROSEMIDE [Concomitant]
  4. HYDROCODONE 5/ACETAMINOPHEN [Concomitant]
  5. METOPROLOL TARTRATE [Concomitant]
  6. SUCRALFATE [Concomitant]

REACTIONS (3)
  - DYSURIA [None]
  - URINARY RETENTION [None]
  - UROSEPSIS [None]
